FAERS Safety Report 10224801 (Version 2)
Quarter: 2014Q4

REPORT INFORMATION
  Report Type: Spontaneous
  Country: US (occurrence: US)
  Receive Date: 20140609
  Receipt Date: 20141112
  Transmission Date: 20150528
  Serious: Yes (Hospitalization, Other)
  Sender: FDA-Public Use
  Company Number: US-GLAXOSMITHKLINE-A0966857A

PATIENT
  Sex: Female

DRUGS (1)
  1. AVANDIA [Suspect]
     Active Substance: ROSIGLITAZONE MALEATE
     Indication: DIABETES MELLITUS
     Dosage: UNK
     Route: 048
     Dates: start: 20000427, end: 20010625

REACTIONS (9)
  - Diastolic dysfunction [Unknown]
  - Coronary artery bypass [Unknown]
  - Stent placement [Unknown]
  - Acute coronary syndrome [Unknown]
  - Atrioventricular block first degree [Unknown]
  - Myocardial infarction [Unknown]
  - Myocardial ischaemia [Unknown]
  - Cardiac failure congestive [Unknown]
  - Coronary artery disease [Unknown]
